FAERS Safety Report 4360507-2 (Version None)
Quarter: 2004Q2

REPORT INFORMATION
  Report Type: 
  Country: None (occurrence: None)
  Receive Date: 20040513
  Receipt Date: 20040429
  Transmission Date: 20050107
  Serious: Yes (Other)
  Sender: FDA-Public Use
  Company Number: 2004-UK-00114UK

PATIENT
  Sex: Female

DRUGS (9)
  1. SPIRIVA [Suspect]
     Indication: CHRONIC OBSTRUCTIVE AIRWAYS DISEASE
     Dosage: 18 MCG, IH
     Dates: start: 20031217
  2. FEXOFENADINE HCL [Suspect]
     Indication: HYPERSENSITIVITY
     Dosage: 180 MG, PO
     Route: 048
     Dates: start: 20031103
  3. PAROXETINE HCL [Concomitant]
  4. PROPRANOLOL [Concomitant]
  5. TRAMADOL HCL [Concomitant]
  6. RIZATRIPTAN [Concomitant]
  7. SEREVENT [Concomitant]
  8. SYMBICORT [Concomitant]
  9. TERBUTALINE [Concomitant]

REACTIONS (3)
  - GASTROOESOPHAGEAL REFLUX DISEASE [None]
  - MUSCLE CRAMP [None]
  - OESOPHAGEAL SPASM [None]
